FAERS Safety Report 9929386 (Version 1)
Quarter: 2014Q1

REPORT INFORMATION
  Report Type: Spontaneous
  Country: JP (occurrence: JP)
  Receive Date: 20140227
  Receipt Date: 20140227
  Transmission Date: 20141002
  Serious: Yes (Other)
  Sender: FDA-Public Use
  Company Number: JP-TEVA-463224ISR

PATIENT
  Sex: 0

DRUGS (2)
  1. RANITIDINE HCL,TAB,75MG [Suspect]
     Dosage: 150 MILLIGRAM DAILY;
     Route: 048
     Dates: start: 20140207
  2. MYSLEE [Concomitant]
     Route: 048

REACTIONS (1)
  - Delirium [Unknown]
